FAERS Safety Report 17133887 (Version 1)
Quarter: 2019Q4

REPORT INFORMATION
  Report Type: Spontaneous
  Country: US (occurrence: US)
  Receive Date: 20191210
  Receipt Date: 20191210
  Transmission Date: 20200122
  Serious: No
  Sender: FDA-Public Use
  Company Number: US-UCBSA-2016037462

PATIENT
  Age: 24 Year
  Sex: Male

DRUGS (7)
  1. LEVETIRACETAM. [Suspect]
     Active Substance: LEVETIRACETAM
     Indication: HOLMES TREMOR
     Dosage: 3000 MG/DAY
  2. TRIHEXYPHENIDYL [Concomitant]
     Active Substance: TRIHEXYPHENIDYL
     Indication: HOLMES TREMOR
     Dosage: 6 MG/DAY
  3. BACLOFEN. [Concomitant]
     Active Substance: BACLOFEN
     Indication: HOLMES TREMOR
     Dosage: 40 MG/DAY
  4. PROPRANOLOL [Concomitant]
     Active Substance: PROPRANOLOL HYDROCHLORIDE
     Indication: HOLMES TREMOR
     Dosage: 120 MG/DAY
  5. LEVETIRACETAM. [Suspect]
     Active Substance: LEVETIRACETAM
     Indication: OFF LABEL USE
  6. BOTULINUM TOXIN [Concomitant]
     Active Substance: BOTULINUM TOXIN NOS
     Indication: HOLMES TREMOR
     Dosage: 250 UNITS
  7. CARBIDOPA LEVODOPA [Concomitant]
     Active Substance: CARBIDOPA\LEVODOPA
     Indication: HOLMES TREMOR
     Dosage: 900 MG/DAY

REACTIONS (4)
  - Cognitive disorder [Unknown]
  - Off label use [Unknown]
  - Sedation [Unknown]
  - Drug ineffective for unapproved indication [Unknown]
